FAERS Safety Report 10225878 (Version 1)
Quarter: 2014Q2

REPORT INFORMATION
  Report Type: Spontaneous
  Country: US (occurrence: US)
  Receive Date: 20140609
  Receipt Date: 20140609
  Transmission Date: 20141212
  Serious: Yes (Death)
  Sender: FDA-Public Use
  Company Number: US-ASTELLAS-2013US006106

PATIENT
  Age: 65 Year
  Sex: Male

DRUGS (1)
  1. PROGRAF [Suspect]
     Indication: TRANSPLANT
     Route: 048
     Dates: end: 20130524

REACTIONS (2)
  - Multi-organ failure [Fatal]
  - Pneumonia [Fatal]
